FAERS Safety Report 20771021 (Version 1)
Quarter: 2022Q2

REPORT INFORMATION
  Report Type: Spontaneous
  Country: EG (occurrence: EG)
  Receive Date: 20220429
  Receipt Date: 20220429
  Transmission Date: 20220720
  Serious: Yes (Life-Threatening)
  Sender: FDA-Public Use
  Company Number: EG-NOVARTISPH-NVSC2022EG098863

PATIENT
  Age: 33 Year
  Sex: Male
  Weight: 59 kg

DRUGS (2)
  1. CEFTRIAXONE [Suspect]
     Active Substance: CEFTRIAXONE
     Indication: Bronchitis bacterial
     Dosage: 2 G, QD
     Route: 030
     Dates: start: 20220422
  2. LIDOCAINE [Concomitant]
     Active Substance: LIDOCAINE
     Indication: Product used for unknown indication
     Dosage: UNK
     Route: 030
     Dates: start: 20220422

REACTIONS (6)
  - Chest pain [Recovered/Resolved]
  - Hyperhidrosis [Recovered/Resolved]
  - Somnolence [Recovered/Resolved]
  - Ocular hyperaemia [Recovered/Resolved]
  - Suffocation feeling [Recovered/Resolved]
  - Rash [Recovered/Resolved]
